FAERS Safety Report 5026158-1 (Version None)
Quarter: 2006Q2

REPORT INFORMATION
  Report Type: 
  Country: None (occurrence: None)
  Receive Date: 20060608
  Receipt Date: 20011012
  Transmission Date: 20061013
  Serious: No
  Sender: FDA-Public Use
  Company Number: 2001-09-0168

PATIENT
  Sex: Male
  Weight: 86 kg

DRUGS (8)
  1. ETHYOL [Suspect]
     Indication: ILL-DEFINED DISORDER
     Dates: start: 20010501, end: 20010521
  2. ETHYOL [Suspect]
     Indication: ILL-DEFINED DISORDER
     Dates: start: 20010501, end: 20010601
  3. ETHYOL [Suspect]
     Indication: ILL-DEFINED DISORDER
     Dates: start: 20010605, end: 20010601
  4. RADIATION THERAPY [Suspect]
     Indication: NEOPLASM MALIGNANT
     Dosage: OTHER
     Dates: start: 20010501, end: 20010521
  5. RADIATION THERAPY [Suspect]
     Indication: NEOPLASM MALIGNANT
     Dosage: OTHER
     Dates: start: 20010501, end: 20010601
  6. RADIATION THERAPY [Suspect]
     Indication: NEOPLASM MALIGNANT
     Dosage: OTHER
     Dates: start: 20010605, end: 20010601
  7. FUNGIZONE [Concomitant]
  8. MOUTHWASH NOS [Concomitant]

REACTIONS (2)
  - DISEASE RECURRENCE [None]
  - RADIATION MUCOSITIS [None]
